FAERS Safety Report 8907216 (Version 4)
Quarter: 2013Q2

REPORT INFORMATION
  Report Type: Spontaneous
  Country: BE (occurrence: BE)
  Receive Date: 20121114
  Receipt Date: 20130415
  Transmission Date: 20140414
  Serious: Yes (Life-Threatening, Hospitalization, Other)
  Sender: FDA-Public Use
  Company Number: BE-ASTRAZENECA-2012SE85863

PATIENT
  Age: 27354 Day
  Sex: Male
  Weight: 70 kg

DRUGS (9)
  1. BRILIQUE [Suspect]
     Indication: INFARCTION
     Route: 048
     Dates: start: 20121026, end: 20121103
  2. AGGRASTAT [Suspect]
     Indication: INFARCTION
     Dosage: 0.1 MG/KG/MIN
     Route: 042
     Dates: start: 20121026, end: 20121029
  3. ASPIRIN [Concomitant]
     Indication: ACUTE MYOCARDIAL INFARCTION
  4. HEPARINE [Concomitant]
  5. ASAFLOW [Concomitant]
     Indication: INFARCTION
     Route: 048
     Dates: start: 20121026, end: 20121104
  6. LIPITOR [Concomitant]
     Indication: INFARCTION
     Route: 048
     Dates: start: 20121026, end: 20121104
  7. ARIXTRA [Concomitant]
     Indication: INFARCTION
     Dosage: 55 CC, 2.5 MG DAILY
     Dates: start: 20121026, end: 20121029
  8. FRAXIPARINE [Concomitant]
     Dosage: 5 C. 0.4 ML DAILY
  9. EMCONCOR [Concomitant]
     Indication: INFARCTION
     Route: 048
     Dates: start: 20121026, end: 20121029

REACTIONS (3)
  - Thrombocytopenia [Recovered/Resolved]
  - Toxicity to various agents [Recovered/Resolved]
  - Monocytopenia [Recovered/Resolved]
